FAERS Safety Report 15229756 (Version 1)
Quarter: 2018Q3

REPORT INFORMATION
  Report Type: Spontaneous
  Country: US (occurrence: US)
  Receive Date: 20180802
  Receipt Date: 20180802
  Transmission Date: 20181010
  Serious: Yes (Other)
  Sender: FDA-Public Use
  Company Number: US-ACCORD-062264

PATIENT
  Age: 64 Year
  Sex: Female
  Weight: 89.81 kg

DRUGS (5)
  1. DECADRON [Concomitant]
     Active Substance: DEXAMETHASONE
     Dosage: STRENGTH: 4 MG?TAKE 1 TABLET BY MOUTH 2 (TWO) TIMES DAILY
     Route: 048
     Dates: start: 20150413, end: 20150810
  2. DOXORUBICIN [Concomitant]
     Active Substance: DOXORUBICIN
     Dates: start: 20150413, end: 20150727
  3. CYTOXAN [Suspect]
     Active Substance: CYCLOPHOSPHAMIDE
     Indication: INVASIVE DUCTAL BREAST CARCINOMA
     Dates: start: 20150413, end: 20150727
  4. DOCETAXEL ACCORD [Suspect]
     Active Substance: DOCETAXEL
     Indication: INVASIVE DUCTAL BREAST CARCINOMA
     Route: 042
     Dates: start: 20150413, end: 20150727
  5. COMPAZINE [Concomitant]
     Active Substance: PROCHLORPERAZINE MALEATE
     Indication: NAUSEA
     Dosage: 1 TABLET BY MOUTH EVERY 4 TO 6 HOURS AS NEEDED
     Route: 048
     Dates: start: 20150413

REACTIONS (4)
  - Alopecia [Not Recovered/Not Resolved]
  - Stomatitis [Unknown]
  - Neuropathy peripheral [Unknown]
  - Nausea [Unknown]

NARRATIVE: CASE EVENT DATE: 20150420
